FAERS Safety Report 5704185-6 (Version None)
Quarter: 2008Q2

REPORT INFORMATION
  Report Type: 
  Country: None (occurrence: None)
  Receive Date: 20080414
  Receipt Date: 20080407
  Transmission Date: 20081010
  Serious: Yes (Hospitalization)
  Sender: FDA-Public Use
  Company Number: US-JNJFOC-20080402287

PATIENT
  Sex: Female

DRUGS (10)
  1. DORIBAX [Suspect]
     Indication: DRUG USE FOR UNKNOWN INDICATION
     Route: 041
  2. ASPIRIN [Concomitant]
     Route: 065
  3. CLONADINE [Concomitant]
     Route: 065
  4. FENTANYL [Concomitant]
     Route: 065
  5. FUROSEMIDE [Concomitant]
     Route: 065
  6. HYDROMORPHONE HCL [Concomitant]
     Route: 065
  7. LISINOPRIL [Concomitant]
     Route: 065
  8. MORPHINE [Concomitant]
     Route: 065
  9. NITROGLYCERIN [Concomitant]
     Route: 065
  10. TIGECYCLINE [Concomitant]
     Route: 065

REACTIONS (1)
  - POST PROCEDURAL HAEMORRHAGE [None]
